FAERS Safety Report 22526956 (Version 1)
Quarter: 2023Q2

REPORT INFORMATION
  Report Type: Spontaneous
  Country: HU (occurrence: HU)
  Receive Date: 20230606
  Receipt Date: 20230606
  Transmission Date: 20230722
  Serious: Yes (Other)
  Sender: FDA-Public Use
  Company Number: HU-BAYER-2023A076116

PATIENT
  Age: 84 Year
  Sex: Male

DRUGS (2)
  1. XOFIGO [Suspect]
     Active Substance: RADIUM RA-223 DICHLORIDE
     Indication: Hormone-refractory prostate cancer
     Dosage: UNK
     Dates: start: 20230404, end: 20230404
  2. XOFIGO [Suspect]
     Active Substance: RADIUM RA-223 DICHLORIDE
     Indication: Hormone-refractory prostate cancer
     Dosage: UNK
     Dates: start: 20230503, end: 20230503

REACTIONS (10)
  - Urinary tract infection [Recovered/Resolved]
  - Urinary tract infection [None]
  - Diarrhoea [None]
  - Chills [None]
  - Pyrexia [None]
  - Chills [None]
  - Asthenia [None]
  - Pyrexia [None]
  - Diarrhoea [Recovered/Resolved]
  - Diarrhoea [None]

NARRATIVE: CASE EVENT DATE: 20230409
